FAERS Safety Report 5260813-3 (Version None)
Quarter: 2007Q1

REPORT INFORMATION
  Report Type: 
  Country: None (occurrence: None)
  Receive Date: 20070309
  Receipt Date: 20070305
  Transmission Date: 20070707
  Serious: Yes (Life-Threatening, Hospitalization)
  Sender: FDA-Public Use
  Company Number: 2007UW04098

PATIENT
  Age: 72 Year
  Sex: Male

DRUGS (5)
  1. IRESSA [Suspect]
     Indication: MENINGITIS
     Route: 048
     Dates: start: 20070118, end: 20070131
  2. IRESSA [Suspect]
     Route: 048
     Dates: start: 20070201, end: 20070214
  3. IRESSA [Suspect]
     Route: 048
     Dates: start: 20070215
  4. LOVENOX [Concomitant]
     Route: 058
  5. IMODIUM [Concomitant]

REACTIONS (1)
  - SUBDURAL HAEMORRHAGE [None]
